FAERS Safety Report 8596058 (Version 3)
Quarter: 2014Q1

REPORT INFORMATION
  Report Type: Spontaneous
  Country: US (occurrence: US)
  Receive Date: 20120605
  Receipt Date: 20140109
  Transmission Date: 20141002
  Serious: Yes (Hospitalization, Disabling)
  Sender: FDA-Public Use
  Company Number: US-ASTRAZENECA-2012SE35029

PATIENT
  Age: 21178 Day
  Sex: Female

DRUGS (35)
  1. NEXIUM [Suspect]
     Indication: GASTROOESOPHAGEAL REFLUX DISEASE
     Dosage: DAILY
     Route: 048
     Dates: start: 20041105
  2. NEXIUM [Suspect]
     Indication: GASTROOESOPHAGEAL REFLUX DISEASE
     Dosage: TWO TIMES A DAY
     Route: 048
  3. PRILOSEC/OMEPRAZOLE [Suspect]
     Route: 048
     Dates: start: 19950508
  4. PRILOSEC/OMEPRAZOLE [Suspect]
     Route: 048
     Dates: start: 2009
  5. CIMETIDINE [Concomitant]
     Dates: start: 19961224
  6. IRBESARTAN [Concomitant]
     Indication: BLOOD PRESSURE ABNORMAL
  7. FENOFIBRATE [Concomitant]
     Indication: BLOOD CHOLESTEROL ABNORMAL
  8. FUROSEMIDE [Concomitant]
     Indication: FLUID RETENTION
  9. METFORMIN [Concomitant]
     Indication: DIABETES MELLITUS
  10. METHOCARBAMOL [Concomitant]
     Indication: MUSCULOSKELETAL STIFFNESS
     Dates: start: 20040430
  11. MONTELUKAST SOD [Concomitant]
     Indication: MULTIPLE ALLERGIES
  12. DILTIAZEM [Concomitant]
     Indication: BLOOD PRESSURE ABNORMAL
  13. ESCITALOPRAM [Concomitant]
     Indication: ANXIETY
  14. TYLENOL [Concomitant]
  15. EFFEXOR XR [Concomitant]
     Dates: start: 20040110
  16. TUSSIONEX [Concomitant]
     Dates: start: 20040209
  17. PROTONIX [Concomitant]
     Dates: start: 20040223
  18. OMNICEF [Concomitant]
     Dates: start: 20040223
  19. DIOVAN HCT [Concomitant]
     Dosage: 160/25 MG
     Dates: start: 20040827
  20. PROPOXY-N / APAP [Concomitant]
     Dosage: 100-650
     Dates: start: 20040827
  21. CLARITIN [Concomitant]
     Dates: start: 20041111
  22. CLARITIN [Concomitant]
     Dates: start: 20090807
  23. ALLEGRA [Concomitant]
     Dates: start: 20041229
  24. HCTZ [Concomitant]
     Dates: start: 20050228
  25. KLOR CON [Concomitant]
     Dates: start: 20050909
  26. IBUPROFEN [Concomitant]
     Dates: start: 20060109
  27. CEPHALEXIN [Concomitant]
     Dates: start: 20060109
  28. OMACOR [Concomitant]
     Dates: start: 20060209
  29. HYDROCO/APAP [Concomitant]
     Dosage: 5 500 MG
     Dates: start: 20060607
  30. ALLOPURINOL [Concomitant]
     Dates: start: 20070105
  31. PREDNISONE [Concomitant]
     Dates: start: 20070525
  32. BENICAR HCT [Concomitant]
     Dosage: 20-12.5 MG
     Dates: start: 20070525
  33. FLUTICASONE [Concomitant]
     Dates: start: 20081219
  34. LEXAPRO [Concomitant]
     Dates: start: 20090107
  35. ONDANSETRON HCL [Concomitant]
     Dates: start: 20110406

REACTIONS (10)
  - Multiple fractures [Unknown]
  - Lower limb fracture [Unknown]
  - Osteoporosis [Unknown]
  - Hand fracture [Unknown]
  - Bone disorder [Unknown]
  - Arthritis [Unknown]
  - Diabetes mellitus [Unknown]
  - Back pain [Unknown]
  - Musculoskeletal pain [Unknown]
  - Depression [Unknown]
